FAERS Safety Report 10264466 (Version 1)
Quarter: 2014Q2

REPORT INFORMATION
  Report Type: Spontaneous
  Country: US (occurrence: US)
  Receive Date: 20140627
  Receipt Date: 20140627
  Transmission Date: 20141212
  Serious: No
  Sender: FDA-Public Use
  Company Number: US-TEVA-489970USA

PATIENT
  Sex: Female
  Weight: 74.91 kg

DRUGS (3)
  1. ACTIQ [Suspect]
     Indication: SPINAL FRACTURE
     Dosage: 2400 MILLIGRAM DAILY;
     Route: 002
     Dates: start: 1997, end: 201404
  2. MORPHINE SULFATE [Concomitant]
  3. METHADONE [Concomitant]

REACTIONS (4)
  - Dental caries [Not Recovered/Not Resolved]
  - Skin ulcer [Not Recovered/Not Resolved]
  - Swelling [Not Recovered/Not Resolved]
  - Skin discolouration [Not Recovered/Not Resolved]
